FAERS Safety Report 18762566 (Version 1)
Quarter: 2021Q1

REPORT INFORMATION
  Report Type: Spontaneous
  Country: US (occurrence: US)
  Receive Date: 20210118
  Receipt Date: 20210118
  Transmission Date: 20210419
  Serious: No
  Sender: FDA-Public Use
  Company Number: None

PATIENT
  Age: 66 Year
  Sex: Female

DRUGS (1)
  1. BOTOX [Suspect]
     Active Substance: ONABOTULINUMTOXINA
     Route: 030
     Dates: start: 202011, end: 202101

REACTIONS (7)
  - Injection site swelling [None]
  - Migraine [None]
  - Vomiting [None]
  - Injection site pain [None]
  - Gastrointestinal infection [None]
  - Drug ineffective [None]
  - Hyperaesthesia [None]

NARRATIVE: CASE EVENT DATE: 20201125
